FAERS Safety Report 8818914 (Version 1)
Quarter: 2012Q4

REPORT INFORMATION
  Report Type: 
  Country: AU (occurrence: AU)
  Receive Date: 20121001
  Receipt Date: 20121001
  Transmission Date: 20130627
  Serious: Yes (Hospitalization)
  Sender: FDA-Public Use
  Company Number: PHHY2012AU084928

PATIENT
  Sex: Female

DRUGS (2)
  1. ACLASTA [Suspect]
     Indication: OSTEOPOROSIS
     Dosage: Yearly
     Route: 042
  2. EXJADE [Suspect]
     Indication: IRON OVERLOAD
     Dosage: 1000 mg, UNK
     Route: 048
     Dates: start: 20111206

REACTIONS (1)
  - Tremor [Unknown]
